FAERS Safety Report 7395187-5 (Version None)
Quarter: 2011Q2

REPORT INFORMATION
  Report Type: 
  Country: None (occurrence: None)
  Receive Date: 20110405
  Receipt Date: 20110331
  Transmission Date: 20111010
  Serious: Yes (Other)
  Sender: FDA-Public Use
  Company Number: BR-PFIZER INC-2011061095

PATIENT
  Age: 63 Year
  Sex: Female
  Weight: 75 kg

DRUGS (28)
  1. BROMAZEPAM [Concomitant]
     Indication: SEDATIVE THERAPY
     Dosage: UNK
  2. LOSARTAN POTASSIUM [Concomitant]
     Indication: HYPERTENSION
  3. SOLMALGIN CARDIO [Concomitant]
     Indication: CARDIAC DISORDER
  4. SUSTRATE [Concomitant]
     Indication: ANTICOAGULANT THERAPY
     Dosage: UNK
  5. CHAMPIX [Suspect]
     Indication: TOBACCO USER
     Dosage: 1 MG, 2X/DAY
     Route: 048
     Dates: start: 20110301, end: 20110325
  6. LOSARTAN POTASSIUM [Concomitant]
     Indication: ANTICOAGULANT THERAPY
     Dosage: 100 MG, 2X/DAY
  7. SOLMALGIN CARDIO [Concomitant]
     Indication: HYPERTENSION
  8. LOSARTAN POTASSIUM [Concomitant]
     Indication: CARDIAC DISORDER
  9. PRESSAT [Concomitant]
     Indication: ANTICOAGULANT THERAPY
  10. PRESSAT [Concomitant]
     Indication: CARDIAC DISORDER
  11. REUQUINOL [Concomitant]
     Indication: SYSTEMIC LUPUS ERYTHEMATOSUS
     Dosage: HALF TABLET IN ALTERNATE DAYS
  12. DIGOXIN [Concomitant]
     Indication: ANTICOAGULANT THERAPY
     Dosage: 0.25 AFTER LUNCH
  13. SPIRONOLACTONE [Concomitant]
     Indication: CARDIAC DISORDER
  14. SPIRONOLACTONE [Concomitant]
     Indication: ANTICOAGULANT THERAPY
  15. PRESSAT [Concomitant]
     Indication: BLOOD PRESSURE INCREASED
     Dosage: 2.5 MG, UNK
  16. OMEPRAZOLE [Concomitant]
     Indication: GASTRITIS
     Dosage: IN FASTING
  17. DIGOXIN [Concomitant]
     Indication: CARDIAC DISORDER
  18. DIGOXIN [Concomitant]
     Indication: HYPERTENSION
  19. NPH INSULIN [Concomitant]
     Indication: DIABETES MELLITUS
     Dosage: UNK
  20. INSULIN [Concomitant]
     Indication: DIABETES MELLITUS
     Dosage: UNK
  21. SOLMALGIN CARDIO [Concomitant]
     Indication: ANTICOAGULANT THERAPY
     Dosage: 100 MG AFTER LUNCH
  22. SPIRONOLACTONE [Concomitant]
     Indication: BLOOD PRESSURE INCREASED
     Dosage: 25 AT 8 AM
  23. CARVEDILOL [Concomitant]
     Indication: CARDIAC DISORDER
     Dosage: 25 MG, 2X/DAY
  24. CARVEDILOL [Concomitant]
     Indication: HYPERTENSION
  25. SUSTRATE [Concomitant]
     Indication: HYPERTENSION
  26. OMEPRAZOLE [Concomitant]
     Indication: GASTRIC DISORDER
  27. CARVEDILOL [Concomitant]
     Indication: ANTICOAGULANT THERAPY
  28. SUSTRATE [Concomitant]
     Indication: CARDIAC DISORDER

REACTIONS (3)
  - BLOOD PRESSURE INCREASED [None]
  - HYPOGLYCAEMIA [None]
  - HYPERGLYCAEMIA [None]
